FAERS Safety Report 16575622 (Version 1)
Quarter: 2019Q3

REPORT INFORMATION
  Report Type: Spontaneous
  Country: CN (occurrence: CN)
  Receive Date: 20190716
  Receipt Date: 20190716
  Transmission Date: 20191004
  Serious: Yes (Other)
  Sender: FDA-Public Use
  Company Number: CN-ROCHE-2351396

PATIENT
  Age: 61 Year
  Sex: Female

DRUGS (8)
  1. PACLITAXEL. [Suspect]
     Active Substance: PACLITAXEL
     Route: 065
  2. TRASTUZUMAB. [Suspect]
     Active Substance: TRASTUZUMAB
     Route: 041
  3. PACLITAXEL. [Suspect]
     Active Substance: PACLITAXEL
     Indication: GASTRIC CANCER
     Dosage: ON DAY 1 OF 21 DAYS CYCLE
     Route: 065
     Dates: start: 201209, end: 201303
  4. PACLITAXEL. [Suspect]
     Active Substance: PACLITAXEL
     Route: 065
  5. TRASTUZUMAB. [Suspect]
     Active Substance: TRASTUZUMAB
     Route: 042
     Dates: start: 20150205, end: 20150923
  6. TRASTUZUMAB. [Suspect]
     Active Substance: TRASTUZUMAB
     Indication: GASTRIC CANCER
     Route: 041
  7. PACLITAXEL. [Suspect]
     Active Substance: PACLITAXEL
     Route: 065
  8. TEGAFUR [Suspect]
     Active Substance: TEGAFUR
     Indication: GASTRIC CANCER
     Dosage: DAY 2- DAY 15
     Route: 065

REACTIONS (3)
  - Drug-induced liver injury [Recovered/Resolved]
  - Bone marrow failure [Unknown]
  - Herpes zoster [Unknown]
